FAERS Safety Report 5141469-7 (Version None)
Quarter: 2006Q4

REPORT INFORMATION
  Report Type: 
  Country: None (occurrence: None)
  Receive Date: 20061101
  Receipt Date: 20061023
  Transmission Date: 20070319
  Serious: Yes (Other)
  Sender: FDA-Public Use
  Company Number: CA-JNJFOC-20061005287

PATIENT
  Age: 83 Year
  Sex: Female

DRUGS (11)
  1. REMICADE [Suspect]
     Route: 042
  2. REMICADE [Suspect]
     Indication: RHEUMATOID ARTHRITIS
     Route: 042
  3. METHOTREXATE [Concomitant]
     Route: 048
  4. LEUCOVORIN CALCIUM [Concomitant]
     Route: 048
  5. DESIPRAMINE HCL [Concomitant]
     Route: 048
  6. FOSAMAX [Concomitant]
  7. METOPROLOL TARTRATE [Concomitant]
  8. AVAPRO [Concomitant]
  9. MIACALCIN [Concomitant]
     Dosage: 200 UNITS DAILY
     Route: 045
  10. VITAMIN D [Concomitant]
  11. CALCIUM [Concomitant]

REACTIONS (1)
  - HIP FRACTURE [None]
